FAERS Safety Report 8474405-6 (Version None)
Quarter: 2012Q2

REPORT INFORMATION
  Report Type: 
  Country: None (occurrence: None)
  Receive Date: 20120628
  Receipt Date: 20120615
  Transmission Date: 20120825
  Serious: Yes (Other)
  Sender: FDA-Public Use
  Company Number: PHEH2012US012214

PATIENT
  Sex: Female

DRUGS (9)
  1. LORAZEPAM [Concomitant]
  2. LEVOTHYROXINE [Concomitant]
  3. AMBIEN [Concomitant]
  4. AFINITOR [Suspect]
     Indication: TUBEROUS SCLEROSIS
     Dosage: 10 MG, DAILY
     Route: 048
     Dates: start: 20120514
  5. PHENOBARBITAL TAB [Concomitant]
  6. LISINOPRIL [Concomitant]
  7. SIMVASTATIN [Concomitant]
  8. ALBUTEROL [Concomitant]
  9. PROZAC [Concomitant]

REACTIONS (3)
  - MENTAL IMPAIRMENT [None]
  - ANGIOMYOLIPOMA [None]
  - FATIGUE [None]
